FAERS Safety Report 8344178 (Version 3)
Quarter: 2013Q1

REPORT INFORMATION
  Report Type: Report from Study
  Country: US (occurrence: US)
  Receive Date: 20120119
  Receipt Date: 20130326
  Transmission Date: 20140127
  Serious: Yes (Hospitalization)
  Sender: FDA-Public Use
  Company Number: US-ACTELION-A-US2012-59524

PATIENT
  Age: 78 Year
  Sex: Female

DRUGS (12)
  1. TRACLEER [Suspect]
     Indication: PULMONARY ARTERIAL HYPERTENSION
     Dosage: 125 MG, UNK
     Route: 048
     Dates: start: 201210
  2. TRACLEER [Suspect]
     Dosage: 65 MG, BID
     Route: 048
     Dates: start: 20120919
  3. TRACLEER [Suspect]
     Dosage: 65 MG, BID
     Route: 048
     Dates: start: 20100609, end: 201007
  4. TRACLEER [Suspect]
     Dosage: 125 MG, BID
     Route: 048
     Dates: start: 201007, end: 20120918
  5. COUMADIN [Concomitant]
  6. NEXIUM [Concomitant]
  7. SINGULAIR [Concomitant]
  8. DILTIAZEM [Concomitant]
  9. ALLOPURINOL [Concomitant]
  10. LASIX [Concomitant]
  11. ARMOUR THYROID [Concomitant]
  12. SPIRONOLACTONE [Concomitant]

REACTIONS (10)
  - Aspartate aminotransferase increased [Recovering/Resolving]
  - Eye disorder [Recovered/Resolved]
  - Colon cancer [Recovered/Resolved]
  - Vomiting [Recovered/Resolved]
  - Cystitis [Recovering/Resolving]
  - Pneumonia [Recovered/Resolved]
  - Bronchitis [Recovered/Resolved]
  - Urinary tract infection [Recovered/Resolved]
  - Liver function test abnormal [Recovering/Resolving]
  - Alanine aminotransferase increased [Recovering/Resolving]
